FAERS Safety Report 8679771 (Version 2)
Quarter: 2012Q4

REPORT INFORMATION
  Report Type: 
  Country: US (occurrence: US)
  Receive Date: 20120724
  Receipt Date: 20120830
  Transmission Date: 20130627
  Serious: Yes (Hospitalization)
  Sender: FDA-Public Use
  Company Number: US-CELGENEUS-163-20785-12071685

PATIENT
  Sex: Female

DRUGS (1)
  1. THALOMID [Suspect]
     Indication: GASTRIC ANTRAL VASCULAR ECTASIA
     Dosage: 100 Milligram
     Route: 048
     Dates: start: 201103, end: 201206

REACTIONS (1)
  - Gastric antral vascular ectasia [Recovering/Resolving]
